FAERS Safety Report 6974225-5 (Version None)
Quarter: 2010Q3

REPORT INFORMATION
  Report Type: 
  Country: None (occurrence: None)
  Receive Date: 20100909
  Receipt Date: 20100902
  Transmission Date: 20110219
  Serious: No
  Sender: FDA-Public Use
  Company Number: US-US-EMD SERONO, INC.-231956J10USA

PATIENT
  Sex: Female
  Weight: 73 kg

DRUGS (8)
  1. REBIF [Suspect]
     Indication: MULTIPLE SCLEROSIS
     Route: 058
     Dates: start: 20050112, end: 20090101
  2. COPAXONE [Suspect]
  3. TENORMIN [Concomitant]
     Indication: PALPITATIONS
  4. ESTRACE [Concomitant]
     Indication: HORMONE THERAPY
  5. RESTORIL [Concomitant]
     Indication: INSOMNIA
  6. VALIUM [Concomitant]
     Indication: ANXIETY
  7. HIGH BLOOD PRESSURE MEDICATION [Concomitant]
     Indication: HYPERTENSION
  8. CITALOPRAM HYDROBROMIDE [Concomitant]
     Indication: ANXIETY

REACTIONS (7)
  - AORTIC VALVE DISEASE [None]
  - CATARACT [None]
  - FLUID RETENTION [None]
  - HAEMOGLOBIN DECREASED [None]
  - MITRAL VALVE DISEASE [None]
  - MYALGIA [None]
  - TEMPORAL ARTERITIS [None]
